FAERS Safety Report 9033051 (Version 1)
Quarter: 2013Q1

REPORT INFORMATION
  Report Type: Spontaneous
  Country: US (occurrence: None)
  Receive Date: 20130109
  Receipt Date: 20130109
  Transmission Date: 20140127
  Serious: Yes (Other)
  Sender: FDA-Public Use
  Company Number: JP-20120075

PATIENT
  Sex: Female

DRUGS (2)
  1. LIPIODOL ULTRA FLUIDE (ETHIODIZED OIL), UNKNOWN [Suspect]
     Indication: THERAPEUTIC EMBOLISATION
     Route: 013
  2. EPIRUBICIN [Suspect]
     Indication: REGIONAL CHEMOTHERAPY
     Route: 013

REACTIONS (2)
  - Peripheral arterial occlusive disease [None]
  - Off label use [None]
